FAERS Safety Report 6418305-1 (Version None)
Quarter: 2009Q4

REPORT INFORMATION
  Report Type: 
  Country: None (occurrence: None)
  Receive Date: 20091023
  Receipt Date: 20091013
  Transmission Date: 20100525
  Serious: Yes (Disabling, Other)
  Sender: FDA-Public Use
  Company Number: ADR36372009

PATIENT
  Age: 71 Year
  Sex: Female

DRUGS (3)
  1. SIMVASTATIN [Suspect]
     Dosage: ORAL
     Route: 048
     Dates: start: 20070201, end: 20070501
  2. ASPIRIN [Concomitant]
  3. CANDESARTAN CILEXETIL [Concomitant]

REACTIONS (2)
  - BLINDNESS [None]
  - OPTIC NEUROPATHY [None]
